FAERS Safety Report 6032136-6 (Version None)
Quarter: 2009Q1

REPORT INFORMATION
  Report Type: 
  Country: None (occurrence: None)
  Receive Date: 20090108
  Receipt Date: 20090106
  Transmission Date: 20090719
  Serious: Yes (Other)
  Sender: FDA-Public Use
  Company Number: CA-ABBOTT-08P-028-0479886-00

PATIENT
  Sex: Female
  Weight: 67.6 kg

DRUGS (7)
  1. HUMIRA [Suspect]
     Indication: CROHN'S DISEASE
     Route: 050
     Dates: start: 20080821, end: 20080911
  2. COFFEE [Concomitant]
     Indication: DRUG USE FOR UNKNOWN INDICATION
     Dosage: 1 SERVING
     Route: 048
     Dates: start: 20080821, end: 20081113
  3. CAFFEINE [Concomitant]
     Indication: DRUG USE FOR UNKNOWN INDICATION
     Dosage: 3 SERVINGS
     Route: 048
     Dates: start: 20080821, end: 20080926
  4. CAFFEINE [Concomitant]
     Dosage: 2 SERVINGS
     Dates: start: 20080926, end: 20081113
  5. TYLENOL (CAPLET) [Concomitant]
     Indication: HEADACHE
     Route: 048
     Dates: start: 20080821, end: 20080930
  6. GRAVOL TAB [Concomitant]
     Indication: NAUSEA
     Route: 048
     Dates: start: 20080821, end: 20080930
  7. SALOFALK [Concomitant]
     Indication: CROHN'S DISEASE
     Route: 048
     Dates: start: 20081030, end: 20081113

REACTIONS (3)
  - ABORTION SPONTANEOUS [None]
  - ABSCESS [None]
  - ILL-DEFINED DISORDER [None]
